FAERS Safety Report 6222970-1 (Version None)
Quarter: 2009Q2

REPORT INFORMATION
  Report Type: 
  Country: None (occurrence: None)
  Receive Date: 20090611
  Receipt Date: 20090604
  Transmission Date: 20091009
  Serious: Yes (Hospitalization)
  Sender: FDA-Public Use
  Company Number: KR-PFIZER INC-2009223770

PATIENT

DRUGS (3)
  1. CELEBREX [Suspect]
     Indication: MUSCULOSKELETAL PAIN
     Route: 048
  2. CELEBREX [Suspect]
     Indication: MUSCLE RUPTURE
  3. COUMADIN [Concomitant]
     Route: 048

REACTIONS (3)
  - POOR PERIPHERAL CIRCULATION [None]
  - SKIN DISCOLOURATION [None]
  - SOFT TISSUE DISORDER [None]
